FAERS Safety Report 5818280-4 (Version None)
Quarter: 2008Q3

REPORT INFORMATION
  Report Type: 
  Country: None (occurrence: None)
  Receive Date: 20080722
  Receipt Date: 20080710
  Transmission Date: 20090109
  Serious: Yes (Hospitalization)
  Sender: FDA-Public Use
  Company Number: DE-PFIZER INC-2008036214

PATIENT
  Age: 69 Year
  Sex: Male

DRUGS (8)
  1. LONOLOX [Suspect]
     Indication: HYPERTENSION
     Route: 048
     Dates: start: 20080110, end: 20080616
  2. CANDESARTAN CILEXETIL [Concomitant]
     Route: 048
  3. ALLOPURINOL [Concomitant]
     Route: 048
  4. GLIMEPIRIDE [Concomitant]
     Route: 048
  5. METOBETA [Concomitant]
     Route: 048
  6. FUROSEMIDE [Concomitant]
     Route: 048
  7. HYDROCHLOROTHIAZIDE [Concomitant]
     Route: 048
  8. ASPIRIN [Concomitant]
     Route: 048

REACTIONS (2)
  - FACE OEDEMA [None]
  - RENAL FAILURE [None]
